FAERS Safety Report 25533004 (Version 1)
Quarter: 2025Q3

REPORT INFORMATION
  Report Type: Spontaneous
  Country: US (occurrence: US)
  Receive Date: 20250709
  Receipt Date: 20250709
  Transmission Date: 20251020
  Serious: Yes (Other)
  Sender: COOPERSURGICAL
  Company Number: US-COOPERSURGICAL, INC.-2025CPS005288

PATIENT
  Age: 32 Year
  Sex: Female
  Weight: 70.295 kg

DRUGS (4)
  1. PARAGARD T 380A [Suspect]
     Active Substance: COPPER
     Indication: Contraception
     Route: 015
     Dates: start: 20081202, end: 20180427
  2. OMEPRAZOLE [Concomitant]
     Active Substance: OMEPRAZOLE
     Dates: start: 201509
  3. LORATADINE [Concomitant]
     Active Substance: LORATADINE
     Dates: start: 201509
  4. LEVOTHYROXINE [Concomitant]
     Active Substance: LEVOTHYROXINE
     Dates: start: 201507

REACTIONS (13)
  - Reproductive complication associated with device [Not Recovered/Not Resolved]
  - Hysterectomy [Recovered/Resolved]
  - Abortion spontaneous [Recovered/Resolved]
  - Device breakage [Recovered/Resolved]
  - Foreign body in reproductive tract [Recovered/Resolved]
  - Complication of device removal [Recovered/Resolved]
  - Embedded device [Recovered/Resolved]
  - Iron deficiency anaemia [Unknown]
  - Menstruation irregular [Recovered/Resolved]
  - Heavy menstrual bleeding [Recovered/Resolved]
  - Menometrorrhagia [Recovered/Resolved]
  - Pain [Unknown]
  - Pelvic pain [Recovered/Resolved]

NARRATIVE: CASE EVENT DATE: 20090101
